FAERS Safety Report 14944943 (Version 1)
Quarter: 2018Q2

REPORT INFORMATION
  Report Type: Spontaneous
  Country: FR (occurrence: FR)
  Receive Date: 20180529
  Receipt Date: 20180529
  Transmission Date: 20180711
  Serious: Yes (Hospitalization, Other)
  Sender: FDA-Public Use
  Company Number: FR-TEVA-2018-FR-898874

PATIENT
  Age: 93 Year
  Sex: Female
  Weight: 57.7 kg

DRUGS (5)
  1. ESCITALOPRAM [Suspect]
     Active Substance: ESCITALOPRAM OXALATE
     Indication: ANXIETY
     Dosage: 10 MILLIGRAM DAILY;
     Dates: start: 2016
  2. KARDEGIC [Interacting]
     Active Substance: ASPIRIN DL-LYSINE
     Indication: ANTIPLATELET THERAPY
     Dosage: 75 MILLIGRAM DAILY;
     Route: 048
     Dates: start: 2015, end: 20171130
  3. LEVOTHYROX 50 MICROGRAMMES, COMPRIM? S?CABLE [Interacting]
     Active Substance: LEVOTHYROXINE SODIUM
     Indication: HYPOTHYROIDISM
     Dosage: 50 MICROGRAM DAILY;
  4. AMLODIPINE [Concomitant]
     Active Substance: AMLODIPINE BESYLATE
     Indication: HYPERTENSION
     Dosage: 3 MILLIGRAM DAILY;
  5. DICHLORHYDRATE DE LEVOCETIRIZINE [Concomitant]
     Indication: RHINITIS
     Dosage: 5 MILLIGRAM DAILY;

REACTIONS (2)
  - Drug interaction [Unknown]
  - Intracranial haematoma [Recovered/Resolved]

NARRATIVE: CASE EVENT DATE: 20171130
